FAERS Safety Report 6068462-4 (Version None)
Quarter: 2009Q1

REPORT INFORMATION
  Report Type: 
  Country: None (occurrence: None)
  Receive Date: 20090203
  Receipt Date: 20090121
  Transmission Date: 20090719
  Serious: Yes (Congenital Anomaly)
  Sender: FDA-Public Use
  Company Number: 2009MB000005

PATIENT
  Sex: 0

DRUGS (1)
  1. CEPHALEXIN [Suspect]
     Dosage: TRPL
     Route: 064

REACTIONS (2)
  - CONGENITAL CHOROID PLEXUS CYST [None]
  - MATERNAL DRUGS AFFECTING FOETUS [None]
